FAERS Safety Report 9549715 (Version 1)
Quarter: 2013Q3

REPORT INFORMATION
  Report Type: Spontaneous
  Country: US (occurrence: None)
  Receive Date: 20130719
  Receipt Date: 20130719
  Transmission Date: 20140515
  Serious: Yes (Other)
  Sender: FDA-Public Use
  Company Number: 2012BAX024806

PATIENT
  Age: 74 Year
  Sex: 0

DRUGS (3)
  1. CYTOXAN [Suspect]
     Indication: PLASMA CELL MYELOMA
  2. BORTEZOMIB (BORTEZOMIB) [Suspect]
     Indication: PLASMA CELL MYELOMA
  3. DEXAMETHASONE (DEXAMETHASONE) [Suspect]
     Indication: PLASMA CELL MYELOMA

REACTIONS (1)
  - Nausea [None]
